FAERS Safety Report 9372599 (Version 1)
Quarter: 2013Q2

REPORT INFORMATION
  Report Type: Report from Study
  Country: US (occurrence: US)
  Receive Date: 20130627
  Receipt Date: 20130627
  Transmission Date: 20140414
  Serious: Yes (Life-Threatening, Other)
  Sender: FDA-Public Use
  Company Number: US-MYLANLABS-2013S1001978

PATIENT
  Age: 14 Year
  Sex: Female
  Weight: 74.84 kg

DRUGS (5)
  1. CLOZAPINE TABLETS [Suspect]
     Indication: PSYCHOTIC DISORDER
     Route: 048
     Dates: start: 2011, end: 20130109
  2. CLOZAPINE TABLETS [Suspect]
     Indication: PSYCHOTIC DISORDER
     Route: 048
     Dates: start: 2011, end: 20130109
  3. CLOZAPINE TABLETS [Suspect]
     Indication: PSYCHOTIC DISORDER
     Route: 048
     Dates: start: 2011, end: 20130109
  4. DEPAKOTE [Concomitant]
  5. SEROQUEL [Concomitant]

REACTIONS (1)
  - Granulocytopenia [Not Recovered/Not Resolved]
